FAERS Safety Report 4498677-8 (Version None)
Quarter: 2004Q3

REPORT INFORMATION
  Report Type: 
  Country: None (occurrence: None)
  Receive Date: 20040927
  Receipt Date: 20040621
  Transmission Date: 20050211
  Serious: No
  Sender: FDA-Public Use
  Company Number: USA040670667

PATIENT
  Sex: Female

DRUGS (7)
  1. STRATTERA [Suspect]
     Indication: ATTENTION DEFICIT/HYPERACTIVITY DISORDER
     Dosage: 40 MG/1 DAY
     Dates: start: 20040607
  2. WELLBUTRIN [Concomitant]
  3. FLUOXETINE HYDROCHLORIDE [Concomitant]
  4. LOPRESSOR [Concomitant]
  5. AMBIEN [Concomitant]
  6. PRILOSEC [Concomitant]
  7. ALEVE [Concomitant]

REACTIONS (7)
  - CARDIAC FLUTTER [None]
  - DIZZINESS [None]
  - FEELING ABNORMAL [None]
  - FLUSHING [None]
  - HEADACHE [None]
  - SLUGGISHNESS [None]
  - TINNITUS [None]
